FAERS Safety Report 7813264-9 (Version None)
Quarter: 2011Q4

REPORT INFORMATION
  Report Type: 
  Country: None (occurrence: None)
  Receive Date: 20111013
  Receipt Date: 20110930
  Transmission Date: 20120403
  Serious: Yes (Life-Threatening, Hospitalization, Other)
  Sender: FDA-Public Use
  Company Number: US-ELI_LILLY_AND_COMPANY-US201107002003

PATIENT
  Sex: Female

DRUGS (19)
  1. FENTANYL [Concomitant]
  2. FERROUS SULFATE TAB [Concomitant]
  3. PROZAC [Concomitant]
  4. LUNESTA [Concomitant]
  5. CELEBREX [Concomitant]
  6. MULTI-VITAMIN [Concomitant]
  7. TAZIDIME [Concomitant]
  8. FLUOXETINE [Concomitant]
  9. OXYCODONE HCL [Concomitant]
  10. DILAUDID [Concomitant]
  11. LEVOTHYROXINE SODIUM [Concomitant]
  12. BYSTOLIC [Concomitant]
  13. FORTEO [Suspect]
     Indication: OSTEOPOROSIS
     Dosage: 20 UG, QD
     Route: 065
     Dates: start: 20110625, end: 20110720
  14. LIPITOR [Concomitant]
  15. NEURONTIN [Concomitant]
  16. GABAPENTIN [Concomitant]
  17. DOCUSATE SODIUM [Concomitant]
  18. CALCIUM CARBONATE [Concomitant]
  19. MORPHINE SULFATE [Concomitant]

REACTIONS (7)
  - CARDIAC FAILURE CONGESTIVE [None]
  - SPINAL DEFORMITY [None]
  - CYSTITIS [None]
  - ELECTROLYTE IMBALANCE [None]
  - RENAL FAILURE ACUTE [None]
  - RESPIRATORY FAILURE [None]
  - INJECTION SITE ERYTHEMA [None]
